FAERS Safety Report 7376128-3 (Version None)
Quarter: 2011Q1

REPORT INFORMATION
  Report Type: 
  Country: None (occurrence: None)
  Receive Date: 20110325
  Receipt Date: 20110301
  Transmission Date: 20110831
  Serious: No
  Sender: FDA-Public Use
  Company Number: US-B.I. PHARMACEUTICALS,INC./RIDGEFIELD-2011-BP-05930BP

PATIENT
  Sex: Male

DRUGS (5)
  1. METOPROLOL [Concomitant]
     Indication: ATRIAL FIBRILLATION
     Dosage: 150 MG
     Route: 048
  2. PRADAXA [Suspect]
     Indication: ATRIAL FIBRILLATION
     Dosage: 300 MG
     Route: 048
     Dates: start: 20110228
  3. CRESTOR [Concomitant]
     Indication: PROPHYLAXIS
     Dosage: 10 MG
     Route: 048
  4. LISINOPRIL [Concomitant]
     Indication: ATRIAL FIBRILLATION
     Route: 048
  5. POTASSIUM CHLORIDE [Concomitant]
     Indication: PROPHYLAXIS
     Route: 048

REACTIONS (2)
  - CHEST PAIN [None]
  - PRODUCTIVE COUGH [None]
